FAERS Safety Report 15704758 (Version 3)
Quarter: 2019Q1

REPORT INFORMATION
  Report Type: Report from Study
  Country: IT (occurrence: IT)
  Receive Date: 20181210
  Receipt Date: 20190221
  Transmission Date: 20190417
  Serious: Yes (Other)
  Sender: FDA-Public Use
  Company Number: IT-PFIZER INC-2018503251

PATIENT
  Age: 55 Year
  Sex: Male

DRUGS (2)
  1. TALOFEN [Suspect]
     Active Substance: PROMAZINE HYDROCHLORIDE
     Indication: AGITATION
     Dosage: 25 GTT, SINGLE
     Route: 048
     Dates: start: 20180807, end: 20180807
  2. LORAZEPAM. [Suspect]
     Active Substance: LORAZEPAM
     Indication: AGITATION
     Dosage: 80 GTT, SINGLE
     Route: 048
     Dates: start: 20180807, end: 20180807

REACTIONS (2)
  - Laryngeal oedema [Recovered/Resolved]
  - Dyspnoea [Recovered/Resolved]

NARRATIVE: CASE EVENT DATE: 20180807
